FAERS Safety Report 8301966-X (Version None)
Quarter: 2012Q2

REPORT INFORMATION
  Report Type: 
  Country: None (occurrence: None)
  Receive Date: 20120420
  Receipt Date: 20120405
  Transmission Date: 20120825
  Serious: Yes (Hospitalization, Other)
  Sender: FDA-Public Use
  Company Number: JP-WATSON-2012-04191

PATIENT
  Age: 12 Year
  Sex: Male

DRUGS (5)
  1. LAMOTRIGINE [Suspect]
     Indication: CONVULSION
     Dosage: 45 MG, DAILY
     Route: 065
  2. RISPERIDONE [Suspect]
     Indication: AGGRESSION
  3. RISPERIDONE [Suspect]
     Indication: IRRITABILITY
     Dosage: 1 MG, UNK
     Route: 065
  4. CLONAZEPAM [Suspect]
     Indication: CONVULSION
     Dosage: 1 MG, UNK
     Route: 065
  5. VALPROATE SODIUM [Suspect]
     Indication: EPILEPSY
     Dosage: UNK
     Route: 065

REACTIONS (5)
  - UNRESPONSIVE TO STIMULI [None]
  - INCREASED APPETITE [None]
  - EYE MOVEMENT DISORDER [None]
  - INAPPROPRIATE ANTIDIURETIC HORMONE SECRETION [None]
  - SOMNOLENCE [None]
